FAERS Safety Report 25975403 (Version 1)
Quarter: 2025Q4

REPORT INFORMATION
  Report Type: Report from Study
  Country: CA (occurrence: CA)
  Receive Date: 20251029
  Receipt Date: 20251029
  Transmission Date: 20260117
  Serious: Yes (Other)
  Sender: BIOCON
  Company Number: CA-BIOCON BIOLOGICS LIMITED-BBL2024001792

PATIENT

DRUGS (2)
  1. HULIO [Suspect]
     Active Substance: ADALIMUMAB-FKJP
     Indication: Hidradenitis
     Dosage: 40 MILLIGRAM, QW
     Route: 058
     Dates: start: 20240220
  2. HULIO [Suspect]
     Active Substance: ADALIMUMAB-FKJP
     Dosage: 40 MILLIGRAM WEEKLY (BEGINNING AT WEEK 4)
     Route: 058

REACTIONS (6)
  - Bell^s palsy [Recovering/Resolving]
  - Condition aggravated [Unknown]
  - Hidradenitis [Recovered/Resolved]
  - Ear infection [Unknown]
  - Product dose omission issue [Unknown]
  - Product storage error [Unknown]
